FAERS Safety Report 5209305-8 (Version None)
Quarter: 2006Q4

REPORT INFORMATION
  Report Type: 
  Country: None (occurrence: None)
  Receive Date: 20061101
  Receipt Date: 20060621
  Transmission Date: 20070319
  Serious: No
  Sender: FDA-Public Use
  Company Number: 2006PV016176

PATIENT
  Age: 55 Year
  Sex: Male
  Weight: 111.5849 kg

DRUGS (5)
  1. SYMLIN [Suspect]
     Dosage: SEE IMAGE
     Route: 058
     Dates: start: 20060101, end: 20060101
  2. SYMLIN [Suspect]
     Dosage: SEE IMAGE
     Route: 058
     Dates: start: 20060201, end: 20060101
  3. SYMLIN [Suspect]
     Dosage: SEE IMAGE
     Route: 058
     Dates: start: 20060101
  4. LANTUS [Concomitant]
  5. ASA BABY [Concomitant]

REACTIONS (5)
  - BLOOD GLUCOSE INCREASED [None]
  - DRUG INEFFECTIVE [None]
  - INJECTION SITE BRUISING [None]
  - INJECTION SITE IRRITATION [None]
  - WEIGHT DECREASED [None]
